FAERS Safety Report 10016199 (Version 1)
Quarter: 2014Q1

REPORT INFORMATION
  Report Type: Spontaneous
  Country: JP (occurrence: JP)
  Receive Date: 20140317
  Receipt Date: 20140317
  Transmission Date: 20141002
  Serious: Yes (Other)
  Sender: FDA-Public Use
  Company Number: JP-UCBSA-114682

PATIENT
  Age: 77 Year
  Sex: Male

DRUGS (8)
  1. NEUPRO [Suspect]
     Indication: PARKINSON^S DISEASE
     Route: 061
     Dates: end: 201402
  2. MAGNESIUM OXIDE [Concomitant]
  3. AMANTADINE HYDROCHLORIDE [Concomitant]
  4. LEVODOPA_CARBIDOPA HYDRATE [Concomitant]
  5. PRAMIPEXOLE HYDROCHLORIDE HYDRATE [Concomitant]
  6. DRIED FERROUS SULFATE [Concomitant]
  7. LOXOPROFEN SODIUM HYDRATE [Concomitant]
  8. REBAMIPIDE [Concomitant]

REACTIONS (1)
  - Hallucination [Recovered/Resolved]
